FAERS Safety Report 13541368 (Version 1)
Quarter: 2017Q2

REPORT INFORMATION
  Report Type: Spontaneous
  Country: US (occurrence: US)
  Receive Date: 20170512
  Receipt Date: 20170512
  Transmission Date: 20170830
  Serious: No
  Sender: FDA-Public Use
  Company Number: US-SA-2016SA198016

PATIENT
  Age: 60 Year
  Sex: Female

DRUGS (2)
  1. SOLOSTAR [Concomitant]
     Active Substance: DEVICE
     Route: 065
  2. APIDRA SOLOSTAR [Suspect]
     Active Substance: INSULIN GLULISINE
     Indication: TYPE 2 DIABETES MELLITUS
     Dosage: DOSE- 15-35 U?FREQUENCY- 5-7 TIMES A DAY
     Route: 065
     Dates: start: 2006

REACTIONS (4)
  - Dizziness [Unknown]
  - Arthralgia [Unknown]
  - Blood glucose increased [Unknown]
  - Back pain [Unknown]
